FAERS Safety Report 12603685 (Version 2)
Quarter: 2016Q3

REPORT INFORMATION
  Report Type: Spontaneous
  Country: US (occurrence: US)
  Receive Date: 20160728
  Receipt Date: 20160920
  Transmission Date: 20161109
  Serious: Yes (Life-Threatening, Hospitalization, Other)
  Sender: FDA-Public Use
  Company Number: US-OTSUKA-2016_018125

PATIENT
  Sex: Male

DRUGS (1)
  1. ABILIFY MAINTENA [Suspect]
     Active Substance: ARIPIPRAZOLE
     Indication: SCHIZOPHRENIA
     Dosage: 400 MG, UNK
     Route: 030

REACTIONS (5)
  - Intentional self-injury [Recovering/Resolving]
  - Impulsive behaviour [Recovering/Resolving]
  - Inappropriate schedule of drug administration [Unknown]
  - Head injury [Recovering/Resolving]
  - Mania [Recovering/Resolving]
